FAERS Safety Report 19800359 (Version 2)
Quarter: 2021Q4

REPORT INFORMATION
  Report Type: Spontaneous
  Country: FI (occurrence: FI)
  Receive Date: 20210907
  Receipt Date: 20211026
  Transmission Date: 20220303
  Serious: Yes (Life-Threatening)
  Sender: FDA-Public Use
  Company Number: None

PATIENT
  Sex: Female

DRUGS (1)
  1. CITALOPRAM HYDROBROMIDE [Suspect]
     Active Substance: CITALOPRAM HYDROBROMIDE
     Indication: Anxiety
     Dosage: 10 MG, QD
     Route: 065
     Dates: end: 20210724

REACTIONS (23)
  - Tooth fracture [Recovering/Resolving]
  - Self-injurious ideation [Recovering/Resolving]
  - Sleep attacks [Recovering/Resolving]
  - Social problem [Recovering/Resolving]
  - Educational problem [Recovering/Resolving]
  - Headache [Recovering/Resolving]
  - General physical health deterioration [Recovering/Resolving]
  - Nasal pruritus [Recovering/Resolving]
  - Rhinitis allergic [Recovering/Resolving]
  - Sneezing [Recovering/Resolving]
  - Eyelid myokymia [Recovering/Resolving]
  - Nightmare [Recovering/Resolving]
  - Muscle twitching [Recovering/Resolving]
  - Musculoskeletal stiffness [Recovering/Resolving]
  - Restlessness [Recovering/Resolving]
  - Disturbance in attention [Recovering/Resolving]
  - Electric shock sensation [Recovering/Resolving]
  - Weight increased [Recovering/Resolving]
  - Bruxism [Recovering/Resolving]
  - Anxiety [Recovering/Resolving]
  - Depression [Recovering/Resolving]
  - Fatigue [Recovering/Resolving]
  - Poor quality sleep [Recovering/Resolving]
